FAERS Safety Report 17656772 (Version 1)
Quarter: 2020Q2

REPORT INFORMATION
  Report Type: Spontaneous
  Country: US (occurrence: US)
  Receive Date: 20200410
  Receipt Date: 20200410
  Transmission Date: 20200713
  Serious: No
  Sender: FDA-Public Use
  Company Number: US-PERRIGO-17US032763

PATIENT
  Age: 39 Year
  Sex: Male
  Weight: 76.19 kg

DRUGS (2)
  1. PSEUDOEPHEDRINE HYDROCHLORIDE. [Suspect]
     Active Substance: PSEUDOEPHEDRINE HYDROCHLORIDE
     Indication: DYSPNOEA
     Dosage: 120 MG, QD
     Route: 048
     Dates: start: 20171116, end: 20171120
  2. AFRIN [Concomitant]
     Active Substance: OXYMETAZOLINE
     Indication: INSOMNIA
     Dosage: 2 TO 3 SPRAYS, UNKNOWN
     Route: 045
     Dates: start: 201710

REACTIONS (3)
  - Somnolence [Unknown]
  - Chest pain [Unknown]
  - Off label use [Recovered/Resolved]

NARRATIVE: CASE EVENT DATE: 20171116
